FAERS Safety Report 23106336 (Version 1)
Quarter: 2023Q4

REPORT INFORMATION
  Report Type: Other
  Country: US (occurrence: None)
  Receive Date: 20231025
  Receipt Date: 20231025
  Transmission Date: 20240110
  Serious: Yes (Other)
  Sender: FDA-Public Use
  Company Number: US-ROCHE-3345470

PATIENT
  Age: 84 Year
  Sex: Female

DRUGS (2)
  1. ACTEMRA [Suspect]
     Active Substance: TOCILIZUMAB
     Indication: Giant cell arteritis
     Dosage: INJECT 0.9ML SUBCUTANEOUSLY ONE TIME A WEEK
     Route: 058
  2. ACTEMRA [Suspect]
     Active Substance: TOCILIZUMAB

REACTIONS (10)
  - Headache [Unknown]
  - Blood pressure abnormal [Unknown]
  - Arthralgia [Unknown]
  - Musculoskeletal disorder [Unknown]
  - Magnetic resonance imaging abnormal [Unknown]
  - Nerve block [Unknown]
  - Malaise [Unknown]
  - Myalgia [Unknown]
  - Fatigue [Unknown]
  - Joint injury [Unknown]
